FAERS Safety Report 6861407-6 (Version None)
Quarter: 2010Q3

REPORT INFORMATION
  Report Type: 
  Country: None (occurrence: None)
  Receive Date: 20100716
  Receipt Date: 20100708
  Transmission Date: 20110219
  Serious: Yes (Life-Threatening, Other)
  Sender: FDA-Public Use
  Company Number: DSA_43176_2010

PATIENT
  Sex: Female
  Weight: 13.6079 kg

DRUGS (6)
  1. XENAZINE [Suspect]
     Indication: CHOREA
     Dosage: (12.5 MG QD ORAL), (1/2 OF 12.5 MG TABLET TWICE DAILY ORAL), (12.5 MG BID ORAL)
     Route: 048
  2. XENAZINE [Suspect]
     Indication: CHOREA
     Dosage: (12.5 MG QD ORAL), (1/2 OF 12.5 MG TABLET TWICE DAILY ORAL), (12.5 MG BID ORAL)
     Route: 048
     Dates: start: 20100301
  3. XENAZINE [Suspect]
     Indication: CHOREA
     Dosage: (12.5 MG QD ORAL), (1/2 OF 12.5 MG TABLET TWICE DAILY ORAL), (12.5 MG BID ORAL)
     Route: 048
     Dates: start: 20100501
  4. COUMADIN [Suspect]
     Dosage: (3 MG AND 3.5 MG TABLETS ALTERNATING DAYS), (2.5 MG QD)
  5. RISPERIDONE [Concomitant]
  6. BACTRIM [Concomitant]

REACTIONS (6)
  - APOPTOSIS [None]
  - HYPERKINESIA [None]
  - INTERNATIONAL NORMALISED RATIO DECREASED [None]
  - INTERNATIONAL NORMALISED RATIO INCREASED [None]
  - IRRITABILITY [None]
  - WILLIAMS SYNDROME [None]
